FAERS Safety Report 5124503-X (Version None)
Quarter: 2006Q4

REPORT INFORMATION
  Report Type: 
  Country: None (occurrence: None)
  Receive Date: 20060821
  Receipt Date: 20060619
  Transmission Date: 20070319
  Serious: No
  Sender: FDA-Public Use
  Company Number: TPA2005A01343

PATIENT
  Sex: Male

DRUGS (6)
  1. ROZEREM [Suspect]
     Dosage: PER ORAL
     Route: 048
  2. PROZAC (FLUOXETINE HYDROCHLORIDE) (20 MILLIGRAM) [Concomitant]
  3. XANAX [Concomitant]
  4. PRILOSEC [Concomitant]
  5. INDERAL (PROPRANOLOL) (20 MILLIGRAM) [Concomitant]
  6. HCTZ (HYDROCHLOROTHIAZIDE) (25 MILLIGRAM) [Concomitant]

REACTIONS (5)
  - ABNORMAL DREAMS [None]
  - CONFUSIONAL STATE [None]
  - DIZZINESS POSTURAL [None]
  - DRUG INTERACTION [None]
  - PHOBIA OF DRIVING [None]
